FAERS Safety Report 12924028 (Version 1)
Quarter: 2016Q4

REPORT INFORMATION
  Report Type: Spontaneous
  Country: US (occurrence: US)
  Receive Date: 20161109
  Receipt Date: 20161109
  Transmission Date: 20170207
  Serious: Yes (Other)
  Sender: FDA-Public Use
  Company Number: None

PATIENT
  Age: 85 Year
  Sex: Female
  Weight: 83.99 kg

DRUGS (1)
  1. PRALUENT [Suspect]
     Active Substance: ALIROCUMAB
     Indication: LIPID METABOLISM DISORDER
     Dosage: 75MG EVERY TWO WEEKS SUBCUTANEOUSLY?
     Route: 058
     Dates: start: 20160921, end: 201610

REACTIONS (4)
  - Fall [None]
  - Hypoacusis [None]
  - Tinnitus [None]
  - Gait disturbance [None]

NARRATIVE: CASE EVENT DATE: 20161102
